FAERS Safety Report 10141715 (Version 2)
Quarter: 2014Q2

REPORT INFORMATION
  Report Type: Spontaneous
  Country: US (occurrence: US)
  Receive Date: 20140429
  Receipt Date: 20140429
  Transmission Date: 20141212
  Serious: No
  Sender: FDA-Public Use
  Company Number: US-MYLANLABS-2013S1010077

PATIENT
  Sex: Female

DRUGS (2)
  1. LORAZEPAM TABLETS, USP [Suspect]
     Indication: INSOMNIA
     Route: 048
     Dates: start: 2013
  2. LORAZEPAM TABLETS, USP [Suspect]
     Indication: OFF LABEL USE
     Route: 048
     Dates: start: 2013

REACTIONS (3)
  - Drug ineffective for unapproved indication [Not Recovered/Not Resolved]
  - Insomnia [Not Recovered/Not Resolved]
  - Abdominal pain upper [Not Recovered/Not Resolved]
